FAERS Safety Report 7641244-5 (Version None)
Quarter: 2011Q3

REPORT INFORMATION
  Report Type: 
  Country: None (occurrence: None)
  Receive Date: 20110728
  Receipt Date: 20110725
  Transmission Date: 20111222
  Serious: Yes (Death)
  Sender: FDA-Public Use
  Company Number: PHHY2011BR67041

PATIENT
  Sex: Male

DRUGS (2)
  1. EXFORGE HCT [Suspect]
     Dosage: VALSARTAN 160 MG, HYDROCHLOROTHIAZIDE 25 MG, AMLODIPINE BESILATE 5 MG,
  2. EXFORGE HCT [Suspect]
     Dosage: VALSARTAN 160 MG, HYDROCHLOROTHIAZIDE 12.5 MG, AMLODIPINE BESILATE 5 MG,

REACTIONS (1)
  - DEATH [None]
